FAERS Safety Report 5273642-1 (Version None)
Quarter: 2007Q1

REPORT INFORMATION
  Report Type: 
  Country: None (occurrence: None)
  Receive Date: 20070323
  Receipt Date: 20061102
  Transmission Date: 20070707
  Serious: No
  Sender: FDA-Public Use
  Company Number: US-GLAXOSMITHKLINE-A0626028A

PATIENT
  Age: 75 Year
  Sex: Male

DRUGS (5)
  1. LEUKERAN [Suspect]
     Dosage: 8MG PER DAY
     Route: 048
     Dates: start: 20061004
  2. GLYBURIDE [Concomitant]
  3. HYZAAR [Concomitant]
  4. ATENOLOL [Concomitant]
  5. VITAMINS [Concomitant]

REACTIONS (2)
  - INITIAL INSOMNIA [None]
  - RESTLESSNESS [None]
